FAERS Safety Report 19940674 (Version 2)
Quarter: 2021Q4

REPORT INFORMATION
  Report Type: Spontaneous
  Country: NL (occurrence: NL)
  Receive Date: 20211011
  Receipt Date: 20211020
  Transmission Date: 20220303
  Serious: Yes (Death, Hospitalization)
  Sender: FDA-Public Use
  Company Number: NL-STADA-232914

PATIENT
  Age: 38 Year
  Sex: Female

DRUGS (25)
  1. METHYLPREDNISOLONE SODIUM SUCCINATE [Suspect]
     Active Substance: METHYLPREDNISOLONE SODIUM SUCCINATE
     Indication: Systemic lupus erythematosus
     Dosage: 1000 MG, FOR 3 DAYS
     Route: 042
  2. HYDROCORTISONE SODIUM SUCCINATE [Suspect]
     Active Substance: HYDROCORTISONE SODIUM SUCCINATE
     Indication: Systemic lupus erythematosus
     Dosage: 100 MG
     Route: 065
  3. METHOTREXATE SODIUM [Suspect]
     Active Substance: METHOTREXATE SODIUM
     Indication: Natural killer-cell leukaemia
     Dosage: UNK
     Route: 065
  4. RITUXIMAB [Suspect]
     Active Substance: RITUXIMAB
     Indication: Systemic lupus erythematosus
     Dosage: 1000 MG
     Route: 042
  5. PREDNISONE [Suspect]
     Active Substance: PREDNISONE
     Indication: Systemic lupus erythematosus
     Dosage: 60 MG, 1X/DAY (FOR SIX MONTHS)
     Route: 065
  6. PREDNISONE [Suspect]
     Active Substance: PREDNISONE
     Dosage: 10 MG, ALTERNATE DAY (EVERY OTHER DAY)
     Route: 065
  7. PREDNISONE [Suspect]
     Active Substance: PREDNISONE
     Dosage: 20 MG, FOR SIX MONTHS
     Route: 065
  8. PREDNISONE [Suspect]
     Active Substance: PREDNISONE
     Dosage: PART OF CHOP CHEMOTHERAPY
     Route: 065
  9. PREDNISONE [Suspect]
     Active Substance: PREDNISONE
     Dosage: 10 MG, 1X/DAY
     Route: 065
  10. PREDNISONE [Suspect]
     Active Substance: PREDNISONE
     Dosage: 10 MG, 2X/DAY
     Route: 065
  11. PREDNISONE [Suspect]
     Active Substance: PREDNISONE
     Dosage: 5 MG
     Route: 065
  12. PREDNISONE [Suspect]
     Active Substance: PREDNISONE
     Dosage: 30 MG, DAILY
     Route: 048
  13. CYCLOPHOSPHAMIDE [Suspect]
     Active Substance: CYCLOPHOSPHAMIDE
     Indication: Immune thrombocytopenia
     Dosage: 500 MG
     Route: 042
  14. CYCLOPHOSPHAMIDE [Suspect]
     Active Substance: CYCLOPHOSPHAMIDE
     Indication: Systemic lupus erythematosus
     Dosage: 2 MG/KG, FOR THREE MONTHS
     Route: 048
  15. CYCLOPHOSPHAMIDE [Suspect]
     Active Substance: CYCLOPHOSPHAMIDE
     Dosage: PART OF CHOP CHEMOTHERAPY
  16. MYCOPHENOLATE MOFETIL [Suspect]
     Active Substance: MYCOPHENOLATE MOFETIL
     Indication: Systemic lupus erythematosus
     Dosage: 750 MG, 2X/DAY
     Route: 065
  17. MYCOPHENOLATE MOFETIL [Suspect]
     Active Substance: MYCOPHENOLATE MOFETIL
     Dosage: 500 MG, 2X/DAY
     Route: 065
  18. AZATHIOPRINE [Suspect]
     Active Substance: AZATHIOPRINE
     Indication: Systemic lupus erythematosus
     Dosage: 2 MG/KG
     Route: 065
  19. AZATHIOPRINE [Suspect]
     Active Substance: AZATHIOPRINE
     Dosage: 25 MG, 1X/DAY
     Route: 065
  20. AZATHIOPRINE [Suspect]
     Active Substance: AZATHIOPRINE
     Dosage: 100 MG, 1X/DAY
     Route: 065
  21. ASPARAGINASE [Concomitant]
     Active Substance: ASPARAGINASE
     Indication: Natural killer-cell leukaemia
     Dosage: UNK
     Route: 065
  22. DEXAMETHASONE [Concomitant]
     Active Substance: DEXAMETHASONE
     Indication: Natural killer-cell leukaemia
     Dosage: UNK
     Route: 065
  23. VINCRISTINE [Concomitant]
     Active Substance: VINCRISTINE
     Indication: Natural killer-cell leukaemia
     Dosage: PART OF CHOP CHEMOTHERAPY
     Route: 065
  24. DOXORUBICIN [Concomitant]
     Active Substance: DOXORUBICIN
     Indication: Natural killer-cell leukaemia
     Dosage: PART OF CHOP CHEMOTHERAPY
     Route: 065
  25. HYDROXYCHLOROQUINE [Concomitant]
     Active Substance: HYDROXYCHLOROQUINE
     Indication: Systemic lupus erythematosus
     Dosage: 400 MG
     Route: 065

REACTIONS (3)
  - Tuberous sclerosis complex [Fatal]
  - Drug ineffective [Fatal]
  - Natural killer-cell leukaemia [Fatal]
